FAERS Safety Report 21784882 (Version 3)
Quarter: 2023Q1

REPORT INFORMATION
  Report Type: Spontaneous
  Country: US (occurrence: US)
  Receive Date: 20221227
  Receipt Date: 20230322
  Transmission Date: 20230418
  Serious: Yes (Other)
  Sender: FDA-Public Use
  Company Number: US-Indivior Limited-INDV-137255-2022

PATIENT

DRUGS (9)
  1. SUBLOCADE [Suspect]
     Active Substance: BUPRENORPHINE
     Indication: Drug dependence
     Dosage: 300 MILLIGRAM, QMO
     Route: 058
     Dates: start: 20221216
  2. DOCUSATE SODIUM [Concomitant]
     Active Substance: DOCUSATE SODIUM
     Indication: Product used for unknown indication
     Dosage: 100 MILLIGRAM, BID
     Route: 048
     Dates: start: 20220823
  3. DOCUSATE SODIUM [Concomitant]
     Active Substance: DOCUSATE SODIUM
     Dosage: 50 MILLIGRAM, QHS (1-2 CAPSULES)
     Route: 048
     Dates: start: 20220929
  4. MAGNESIUM [Concomitant]
     Active Substance: MAGNESIUM
     Indication: Muscle spasms
     Dosage: 250 MILLIGRAM, BID
     Route: 048
     Dates: start: 20220827
  5. LIDOCAINE HYDROCHLORIDE [Concomitant]
     Active Substance: LIDOCAINE HYDROCHLORIDE
     Indication: Glossodynia
     Dosage: 10 MILLILITER, Q3H (SWISH AND SPIT OUT)
     Route: 048
     Dates: start: 20221013
  6. PRAZOSIN HYDROCHLORIDE [Concomitant]
     Active Substance: PRAZOSIN HYDROCHLORIDE
     Indication: Product used for unknown indication
     Dosage: 5 MILLIGRAM, QHS
     Route: 048
     Dates: start: 20221215
  7. QUETIAPINE FUMARATE [Concomitant]
     Active Substance: QUETIAPINE FUMARATE
     Indication: Product used for unknown indication
     Dosage: 50 MILLIGRAM, QHS
     Route: 048
     Dates: start: 20221215
  8. OXCARBAZEPINE [Concomitant]
     Active Substance: OXCARBAZEPINE
     Indication: Product used for unknown indication
     Dosage: 600 MILLIGRAM, BID
     Route: 048
     Dates: start: 20230214
  9. NALOXONE HCL [Concomitant]
     Active Substance: NALOXONE HYDROCHLORIDE
     Indication: Product used for unknown indication
     Dosage: 0.1 MILLILITER ( REPEATE DOSE EVERY 2-3 MIN ALTERNATING NOSTRILS)
     Route: 045
     Dates: start: 20230124

REACTIONS (2)
  - Injection site thrombosis [Recovered/Resolved]
  - Anxiety [Recovered/Resolved]

NARRATIVE: CASE EVENT DATE: 20221216
